FAERS Safety Report 12175984 (Version 1)
Quarter: 2016Q1

REPORT INFORMATION
  Report Type: Spontaneous
  Country: US (occurrence: US)
  Receive Date: 20160314
  Receipt Date: 20160314
  Transmission Date: 20160526
  Serious: No
  Sender: FDA-Public Use
  Company Number: US-PFIZER INC-2016146253

PATIENT
  Age: 31 Month
  Sex: Male
  Weight: 13 kg

DRUGS (2)
  1. GENOTROPIN [Suspect]
     Active Substance: SOMATROPIN
     Indication: HYPOPITUITARISM
     Dosage: 0.5 MG, DAILY
     Route: 058
  2. LEVOTHYROXINE. [Concomitant]
     Active Substance: LEVOTHYROXINE
     Indication: HYPOPITUITARISM
     Dosage: 50MCG, 1 TABLET BY MOUTH DAILY
     Route: 048
     Dates: start: 201502

REACTIONS (2)
  - Abnormal behaviour [Unknown]
  - Decreased appetite [Unknown]
